FAERS Safety Report 7364833-4 (Version None)
Quarter: 2011Q1

REPORT INFORMATION
  Report Type: 
  Country: None (occurrence: None)
  Receive Date: 20110321
  Receipt Date: 20110314
  Transmission Date: 20110831
  Serious: Yes (Death, Hospitalization)
  Sender: FDA-Public Use
  Company Number: PHHY2011US00759

PATIENT
  Sex: Male
  Weight: 95 kg

DRUGS (1)
  1. EXJADE [Suspect]
     Dosage: 2000 MG, QD
     Route: 048
     Dates: start: 20090501, end: 20101201

REACTIONS (17)
  - LEUKOCYTOSIS [None]
  - MYELODYSPLASTIC SYNDROME [None]
  - THROMBOCYTOPENIA [None]
  - PNEUMONIA [None]
  - CHEST PAIN [None]
  - IRRITABLE BOWEL SYNDROME [None]
  - MYOCARDIAL INFARCTION [None]
  - CORONARY ARTERY DISEASE [None]
  - BENIGN PROSTATIC HYPERPLASIA [None]
  - CARDIAC FAILURE CONGESTIVE [None]
  - RESPIRATORY FAILURE [None]
  - SLEEP APNOEA SYNDROME [None]
  - HAEMOCHROMATOSIS [None]
  - ISCHAEMIC CARDIOMYOPATHY [None]
  - HYPERLIPIDAEMIA [None]
  - TYPE 1 DIABETES MELLITUS [None]
  - RENAL FAILURE [None]
